FAERS Safety Report 7199873-1 (Version None)
Quarter: 2010Q4

REPORT INFORMATION
  Report Type: 
  Country: None (occurrence: None)
  Receive Date: 20101228
  Receipt Date: 20101227
  Transmission Date: 20110411
  Serious: Yes (Death)
  Sender: FDA-Public Use
  Company Number: BE-ROCHE-750284

PATIENT
  Age: 67 Year
  Sex: Female
  Weight: 55 kg

DRUGS (3)
  1. AVASTIN [Suspect]
     Indication: COLON CANCER
     Route: 042
     Dates: start: 20100617, end: 20101214
  2. CAMPTO [Suspect]
     Indication: COLON CANCER
     Route: 042
     Dates: start: 20100617, end: 20101214
  3. FLURACEDYL [Suspect]
     Indication: COLON CANCER
     Route: 042
     Dates: start: 20100617, end: 20101214

REACTIONS (3)
  - ABDOMINAL PAIN [None]
  - DIARRHOEA [None]
  - NAUSEA [None]
